FAERS Safety Report 12542278 (Version 1)
Quarter: 2016Q3

REPORT INFORMATION
  Report Type: Spontaneous
  Country: PT (occurrence: PT)
  Receive Date: 20160708
  Receipt Date: 20160708
  Transmission Date: 20161109
  Serious: Yes (Other)
  Sender: FDA-Public Use
  Company Number: PT-009507513-1607PRT003508

PATIENT
  Sex: Female

DRUGS (4)
  1. IMPLANON [Suspect]
     Active Substance: ETONOGESTREL
     Indication: CONTRACEPTION
     Dosage: UNKNOWN
     Route: 065
     Dates: start: 201006
  2. CRESTOR [Suspect]
     Active Substance: ROSUVASTATIN CALCIUM
     Indication: PRODUCT USED FOR UNKNOWN INDICATION
     Dosage: UNKNOWN
     Route: 065
  3. STOCRIN [Interacting]
     Active Substance: EFAVIRENZ
     Indication: HIV INFECTION
     Dosage: UNKNOWN
     Route: 065
  4. TRUVADA [Interacting]
     Active Substance: EMTRICITABINE\TENOFOVIR DISOPROXIL FUMARATE
     Indication: HIV INFECTION
     Dosage: UNKNOWN
     Route: 065

REACTIONS (4)
  - Drug interaction [Unknown]
  - Abortion induced [Unknown]
  - Maternal exposure during pregnancy [Recovered/Resolved]
  - Pregnancy with implant contraceptive [Recovered/Resolved]

NARRATIVE: CASE EVENT DATE: 201302
